FAERS Safety Report 13422887 (Version 1)
Quarter: 2017Q2

REPORT INFORMATION
  Report Type: Spontaneous
  Country: US (occurrence: US)
  Receive Date: 20170410
  Receipt Date: 20170410
  Transmission Date: 20170830
  Serious: No
  Sender: FDA-Public Use
  Company Number: None

PATIENT
  Age: 79 Year
  Sex: Male

DRUGS (2)
  1. LEUCOVORIN. [Suspect]
     Active Substance: LEUCOVORIN
  2. METHOTREXATE TABLETS [Suspect]
     Active Substance: METHOTREXATE
     Route: 048

REACTIONS (6)
  - Incorrect dose administered [None]
  - Pancytopenia [None]
  - Vomiting [None]
  - Drug dispensing error [None]
  - Mucosal inflammation [None]
  - Nausea [None]
